FAERS Safety Report 6770469-6 (Version None)
Quarter: 2010Q2

REPORT INFORMATION
  Report Type: 
  Country: None (occurrence: None)
  Receive Date: 20100615
  Receipt Date: 20100603
  Transmission Date: 20101027
  Serious: Yes (Other)
  Sender: FDA-Public Use
  Company Number: JP-PFIZER INC-2010069559

PATIENT
  Age: 32 Year
  Sex: Female

DRUGS (2)
  1. ZITHROMAC SR [Suspect]
     Dosage: 2 G, 1X/DAY
     Route: 048
     Dates: start: 20100531, end: 20100531
  2. THEOPHYLLINE [Suspect]
     Dosage: 300 MG, UNK
     Dates: start: 20100531, end: 20100602

REACTIONS (1)
  - DRUG TOXICITY [None]
